FAERS Safety Report 6704073-2 (Version None)
Quarter: 2010Q2

REPORT INFORMATION
  Report Type: 
  Country: None (occurrence: None)
  Receive Date: 20100423
  Receipt Date: 20100212
  Transmission Date: 20101027
  Serious: No
  Sender: FDA-Public Use
  Company Number: ALL1-2010-00843

PATIENT
  Age: 14 Year
  Sex: Male
  Weight: 113.4 kg

DRUGS (1)
  1. VYVANSE [Suspect]
     Indication: ATTENTION DEFICIT/HYPERACTIVITY DISORDER
     Dosage: 80 MG, 1X/DAY:QD (2) 40 MG CAPSULES, ORAL
     Route: 048
     Dates: start: 20080101, end: 20100206

REACTIONS (3)
  - NEGATIVISM [None]
  - OFF LABEL USE [None]
  - OVERDOSE [None]
